FAERS Safety Report 25942172 (Version 1)
Quarter: 2025Q4

REPORT INFORMATION
  Report Type: Report from Study
  Country: US (occurrence: US)
  Receive Date: 20251020
  Receipt Date: 20251020
  Transmission Date: 20260117
  Serious: Yes (Other)
  Sender: TAKEDA
  Company Number: US-TAKEDA-2021TUS071823

PATIENT
  Age: 15 Year
  Sex: Male

DRUGS (9)
  1. IDURSULFASE [Suspect]
     Active Substance: IDURSULFASE
     Indication: Mucopolysaccharidosis II
     Dosage: 34.7 MILLIGRAM, 1/WEEK
     Dates: start: 20210602
  2. IDURSULFASE [Suspect]
     Active Substance: IDURSULFASE
     Dosage: 32 MILLIGRAM, 1/WEEK
     Dates: start: 202106
  3. IDURSULFASE [Suspect]
     Active Substance: IDURSULFASE
     Dosage: 34 MILLIGRAM, 1/WEEK
  4. FAMOTIDINE [Concomitant]
     Active Substance: FAMOTIDINE
  5. METHYLPREDNISOLONE SODIUM SUCCINATE [Concomitant]
     Active Substance: METHYLPREDNISOLONE SODIUM SUCCINATE
  6. SODIUM CHLORIDE [Concomitant]
     Active Substance: SODIUM CHLORIDE
  7. LIDOCAINE\PRILOCAINE [Concomitant]
     Active Substance: LIDOCAINE\PRILOCAINE
  8. BACTERIOSTATIC WATER [Concomitant]
     Active Substance: WATER
  9. EPINEPHRINE [Concomitant]
     Active Substance: EPINEPHRINE

REACTIONS (6)
  - Loss of consciousness [Unknown]
  - Aggression [Unknown]
  - Weight decreased [Unknown]
  - Product dose omission issue [Unknown]
  - Oesophageal disorder [Unknown]
  - Device issue [Unknown]

NARRATIVE: CASE EVENT DATE: 20220725
